FAERS Safety Report 9833849 (Version 1)
Quarter: 2014Q1

REPORT INFORMATION
  Report Type: Spontaneous
  Country: US (occurrence: US)
  Receive Date: 20140122
  Receipt Date: 20140122
  Transmission Date: 20141002
  Serious: No
  Sender: FDA-Public Use
  Company Number: US-BIOGENIDEC-2014BI005112

PATIENT
  Age: 66 Year
  Sex: Female

DRUGS (17)
  1. TECFIDERA [Suspect]
     Indication: MULTIPLE SCLEROSIS
     Route: 048
     Dates: start: 20131014
  2. BACLOFEN [Concomitant]
  3. CLOTRIMAZOLE [Concomitant]
  4. DICYCLOMINE HCL [Concomitant]
  5. FERROUS SULFATE [Concomitant]
  6. FOLIC ACID [Concomitant]
  7. FUROSEMIDE [Concomitant]
  8. GABAPENTIN [Concomitant]
  9. LEVOTHYROXINE SODIUM [Concomitant]
  10. NADOLOL [Concomitant]
  11. OMEPRAZOLE [Concomitant]
  12. SENNA-S [Concomitant]
  13. SIMVASTATIN [Concomitant]
  14. TRAMADOL-ACETAMINOPHEN [Concomitant]
  15. TYLENOL [Concomitant]
  16. VENLAFAXINE HCL [Concomitant]
  17. ZETIA [Concomitant]

REACTIONS (1)
  - Fatigue [Unknown]
